FAERS Safety Report 4772172-0 (Version None)
Quarter: 2005Q3

REPORT INFORMATION
  Report Type: 
  Country: None (occurrence: None)
  Receive Date: 20050919
  Receipt Date: 20040924
  Transmission Date: 20060218
  Serious: No
  Sender: FDA-Public Use
  Company Number: US-BRISTOL-MYERS SQUIBB COMPANY-12712881

PATIENT
  Age: 56 Year
  Sex: Male

DRUGS (1)
  1. DEFINITY [Suspect]
     Indication: ECHOCARDIOGRAM
     Dosage: SLOW INFUSION ADMINISTERED OVER 2 TO 3 MINUTES
     Route: 042
     Dates: start: 20040924

REACTIONS (8)
  - BLOOD PRESSURE INCREASED [None]
  - BURNING SENSATION [None]
  - EPISTAXIS [None]
  - FLUSHING [None]
  - HEADACHE [None]
  - MUSCLE SPASMS [None]
  - SENSATION OF PRESSURE [None]
  - VISION BLURRED [None]
